FAERS Safety Report 5968389-X (Version None)
Quarter: 2008Q4

REPORT INFORMATION
  Report Type: 
  Country: None (occurrence: None)
  Receive Date: 20081126
  Receipt Date: 20081121
  Transmission Date: 20090506
  Serious: Yes (Hospitalization)
  Sender: FDA-Public Use
  Company Number: NO-ABBOTT-08P-122-0489161-00

PATIENT
  Sex: Female

DRUGS (2)
  1. REDUCTIL 15MG [Suspect]
     Indication: WEIGHT DECREASED
     Route: 048
     Dates: start: 20081021, end: 20081028
  2. NOT REPORTED MEDICATION [Concomitant]
     Indication: DRUG USE FOR UNKNOWN INDICATION

REACTIONS (3)
  - INSOMNIA [None]
  - MUSCLE SPASMS [None]
  - STRESS [None]
